FAERS Safety Report 13858555 (Version 1)
Quarter: 2017Q3

REPORT INFORMATION
  Report Type: Spontaneous
  Country: US (occurrence: US)
  Receive Date: 20170810
  Receipt Date: 20170810
  Transmission Date: 20171127
  Serious: Yes (Disabling)
  Sender: FDA-Public Use
  Company Number: None

PATIENT
  Sex: Female
  Weight: 65.25 kg

DRUGS (20)
  1. LAMOTRIGINE. [Concomitant]
     Active Substance: LAMOTRIGINE
  2. BACLOFEN. [Concomitant]
     Active Substance: BACLOFEN
  3. CALCIUM [Concomitant]
     Active Substance: CALCIUM
  4. CLONAZEPAM. [Suspect]
     Active Substance: CLONAZEPAM
     Indication: ANXIETY
     Dosage: ?          QUANTITY:1.5 TABLET(S);?
     Route: 048
  5. WOMEN^S MULTI-VITAMIN [Concomitant]
  6. GLUCOSAMINE CHONDROITIN [Concomitant]
     Active Substance: CHONDROITIN SULFATE (BOVINE)\GLUCOSAMINE HYDROCHLORIDE
  7. IBUPROFEN. [Concomitant]
     Active Substance: IBUPROFEN
  8. BUPROPION. [Concomitant]
     Active Substance: BUPROPION
  9. DIAZEPAM. [Concomitant]
     Active Substance: DIAZEPAM
  10. FISH OIL [Concomitant]
     Active Substance: FISH OIL
  11. COLLAGEN [Concomitant]
     Active Substance: COLLAGEN
  12. PROBIOTIC [Concomitant]
     Active Substance: PROBIOTICS NOS
  13. PEPPERMINT OIL [Concomitant]
     Active Substance: PEPPERMINT OIL
  14. NAPROXEN. [Concomitant]
     Active Substance: NAPROXEN
  15. FOLIC ACID. [Concomitant]
     Active Substance: FOLIC ACID
  16. VITAMIN E [Concomitant]
     Active Substance: .ALPHA.-TOCOPHEROL
  17. ACETAMINOPHEN. [Concomitant]
     Active Substance: ACETAMINOPHEN
  18. ALPRAZOLAM. [Suspect]
     Active Substance: ALPRAZOLAM
     Indication: PANIC ATTACK
     Dosage: ?          QUANTITY:1 TABLET(S);?
     Route: 048
  19. BIOTIN [Concomitant]
     Active Substance: BIOTIN
  20. N-ACETYL-L-CYSTEINE [Concomitant]
     Active Substance: ACETYLCYSTEINE

REACTIONS (18)
  - Anxiety [None]
  - Eye contusion [None]
  - Influenza like illness [None]
  - Vision blurred [None]
  - Impaired work ability [None]
  - Agoraphobia [None]
  - Loss of personal independence in daily activities [None]
  - Akathisia [None]
  - Fine motor skill dysfunction [None]
  - Panic attack [None]
  - Gastrointestinal disorder [None]
  - Balance disorder [None]
  - Condition aggravated [None]
  - Fatigue [None]
  - Alopecia [None]
  - Fear [None]
  - Aphasia [None]
  - Sleep disorder [None]

NARRATIVE: CASE EVENT DATE: 20100901
